FAERS Safety Report 5048500-8 (Version None)
Quarter: 2006Q3

REPORT INFORMATION
  Report Type: 
  Country: None (occurrence: None)
  Receive Date: 20060705
  Receipt Date: 20060622
  Transmission Date: 20061208
  Serious: Yes (Other)
  Sender: FDA-Public Use
  Company Number: VNL_0158_2006

PATIENT
  Age: 58 Year
  Sex: Female

DRUGS (5)
  1. APO-GO [Suspect]
     Indication: PARKINSON'S DISEASE
     Dosage: 6 MG/HR INFUSION SC
     Route: 058
     Dates: start: 20031110, end: 20040510
  2. PERGOLIDE [Concomitant]
  3. LEVODOPA COMB [Concomitant]
  4. LEVODOPA 125 HBS [Concomitant]
  5. LEVODOPA COMB 125 CR [Concomitant]

REACTIONS (1)
  - HAEMOLYTIC ANAEMIA [None]
